FAERS Safety Report 6569763-3 (Version None)
Quarter: 2010Q1

REPORT INFORMATION
  Report Type: 
  Country: None (occurrence: None)
  Receive Date: 20100204
  Receipt Date: 20100126
  Transmission Date: 20100710
  Serious: Yes (Hospitalization)
  Sender: FDA-Public Use
  Company Number: JP-NOVOPROD-283684

PATIENT
  Age: 14 Year
  Sex: Female
  Weight: 49 kg

DRUGS (5)
  1. NORDITROPIN NORDIFLEX [Suspect]
     Indication: GROWTH HORMONE DEFICIENCY
     Dosage: 8.4 MG, QW
     Route: 058
     Dates: start: 20071228
  2. THYRADIN S [Concomitant]
     Dosage: 50 UG, UNK
     Route: 048
     Dates: start: 20080130, end: 20080321
  3. THYRADIN S [Concomitant]
     Dosage: 75 UG, UNK
     Dates: start: 20080322
  4. DESMOPRESSINE [Concomitant]
     Dosage: 12.5 UG, UNK
     Route: 045
     Dates: start: 20070312
  5. CORTRIL                            /00028601/ [Concomitant]
     Dosage: 12 MG, UNK
     Route: 048
     Dates: start: 20070315

REACTIONS (2)
  - CONDITION AGGRAVATED [None]
  - NEOPLASM [None]
